FAERS Safety Report 4930446-4 (Version None)
Quarter: 2006Q1

REPORT INFORMATION
  Report Type: 
  Country: None (occurrence: None)
  Receive Date: 20060118
  Receipt Date: 20050907
  Transmission Date: 20060701
  Serious: No
  Sender: FDA-Public Use
  Company Number: 2005001751

PATIENT
  Age: 82 Year
  Sex: Female
  Weight: 45.3597 kg

DRUGS (12)
  1. TARCEVA [Suspect]
     Indication: NON-SMALL CELL LUNG CANCER
     Dosage: 150 MG (QD), ORAL
     Route: 048
     Dates: start: 20050101
  2. VITAMINS (VITAMINS) [Concomitant]
  3. POTASSIUM CHLORIDE [Concomitant]
  4. DIAZIDE [Concomitant]
  5. ASPIRIN [Concomitant]
  6. AVAPRO [Concomitant]
  7. VITAMIN B12 [Concomitant]
  8. ZOLOFT [Concomitant]
  9. EFFEXOR [Concomitant]
  10. VERAPAMIL [Concomitant]
  11. LESCOL [Concomitant]
  12. CLARITIN [Concomitant]

REACTIONS (14)
  - ACNE [None]
  - ALOPECIA [None]
  - BLISTER [None]
  - BREAST INFECTION [None]
  - EYE DISCHARGE [None]
  - EYELID MARGIN CRUSTING [None]
  - HAIR GROWTH ABNORMAL [None]
  - HAIR TEXTURE ABNORMAL [None]
  - HYPERAESTHESIA [None]
  - LACRIMATION INCREASED [None]
  - NAIL BED INFECTION [None]
  - NEUROPATHY [None]
  - ONYCHOCLASIS [None]
  - RASH PAPULAR [None]
